FAERS Safety Report 22095161 (Version 1)
Quarter: 2023Q1

REPORT INFORMATION
  Report Type: Spontaneous
  Country: US (occurrence: US)
  Receive Date: 20230314
  Receipt Date: 20230314
  Transmission Date: 20230417
  Serious: No
  Sender: FDA-Public Use
  Company Number: US-ELI_LILLY_AND_COMPANY-US202303005333

PATIENT

DRUGS (1)
  1. EMGALITY [Suspect]
     Active Substance: GALCANEZUMAB-GNLM
     Indication: Migraine
     Dosage: 240 MG, SINGLE (2 PENS OF 120 MG)
     Route: 058
     Dates: start: 20230201

REACTIONS (2)
  - Ocular discomfort [Unknown]
  - Swelling of eyelid [Unknown]
